FAERS Safety Report 10156545 (Version 2)
Quarter: 2014Q2

REPORT INFORMATION
  Report Type: Spontaneous
  Country: US (occurrence: US)
  Receive Date: 20140507
  Receipt Date: 20140511
  Transmission Date: 20141212
  Serious: No
  Sender: FDA-Public Use
  Company Number: US-009507513-1404USA014553

PATIENT
  Age: 50 Year
  Sex: Female

DRUGS (4)
  1. PEGINTRON [Suspect]
     Indication: HEPATITIS C
     Dosage: REDIPEN, QW
     Route: 058
     Dates: start: 201402
  2. PEGINTERFERON ALFA-2B [Suspect]
     Indication: HEPATITIS C
     Dosage: UNK
  3. REBETOL [Suspect]
  4. SOFOSBUVIR [Concomitant]

REACTIONS (5)
  - Viral load increased [Not Recovered/Not Resolved]
  - Influenza like illness [Not Recovered/Not Resolved]
  - Adverse event [Not Recovered/Not Resolved]
  - Product quality issue [Unknown]
  - Underdose [Unknown]
